FAERS Safety Report 6016497-X (Version None)
Quarter: 2008Q4

REPORT INFORMATION
  Report Type: 
  Country: None (occurrence: None)
  Receive Date: 20081222
  Receipt Date: 20081208
  Transmission Date: 20090506
  Serious: Yes (Hospitalization)
  Sender: FDA-Public Use
  Company Number: TR-ELI_LILLY_AND_COMPANY-TR200812003589

PATIENT
  Age: 22 Year
  Sex: Female

DRUGS (2)
  1. ZYPREXA [Suspect]
     Indication: MANIA
     Dosage: UNK, UNKNOWN
     Route: 065
  2. ZYPREXA [Suspect]
     Dosage: 20 MG, DAILY (1/D)
     Route: 065

REACTIONS (5)
  - ANXIETY DISORDER [None]
  - BIPOLAR I DISORDER [None]
  - BODY MASS INDEX INCREASED [None]
  - LIVER FUNCTION TEST ABNORMAL [None]
  - PANIC ATTACK [None]
